FAERS Safety Report 5801286-9 (Version None)
Quarter: 2008Q3

REPORT INFORMATION
  Report Type: 
  Country: None (occurrence: None)
  Receive Date: 20080703
  Receipt Date: 20080703
  Transmission Date: 20090109
  Serious: Yes (Disabling, Other)
  Sender: FDA-Public Use
  Company Number: None

PATIENT
  Age: 82 Year
  Sex: Female
  Weight: 72.5755 kg

DRUGS (4)
  1. LEVAQUIN [Suspect]
     Indication: ANTIBIOTIC PROPHYLAXIS
     Dosage: 2 PER DAY
     Dates: start: 20080124
  2. LEVAQUIN [Suspect]
     Indication: SKIN CANCER
     Dosage: 2 PER DAY
     Dates: start: 20080124
  3. LEVAQUIN [Suspect]
     Indication: ANTIBIOTIC PROPHYLAXIS
     Dosage: 2 PER DAY
     Dates: start: 20080131
  4. LEVAQUIN [Suspect]
     Indication: SKIN CANCER
     Dosage: 2 PER DAY
     Dates: start: 20080131

REACTIONS (5)
  - ACTIVITIES OF DAILY LIVING IMPAIRED [None]
  - ARTHROPATHY [None]
  - DYSSTASIA [None]
  - PAIN [None]
  - TENDON DISORDER [None]
